FAERS Safety Report 16823562 (Version 1)
Quarter: 2019Q3

REPORT INFORMATION
  Report Type: Report from Study
  Country: CA (occurrence: CA)
  Receive Date: 20190918
  Receipt Date: 20190918
  Transmission Date: 20191005
  Serious: Yes (Other)
  Sender: FDA-Public Use
  Company Number: CA-JNJFOC-20190725327

PATIENT
  Age: 35 Year
  Sex: Male
  Weight: 120.1 kg

DRUGS (1)
  1. TREMFYA [Suspect]
     Active Substance: GUSELKUMAB
     Indication: PSORIASIS
     Route: 058
     Dates: start: 20190423

REACTIONS (3)
  - Skin infection [Not Recovered/Not Resolved]
  - Skin disorder [Unknown]
  - Psoriasis [Unknown]
